FAERS Safety Report 8069811-8 (Version None)
Quarter: 2012Q1

REPORT INFORMATION
  Report Type: 
  Country: None (occurrence: None)
  Receive Date: 20120125
  Receipt Date: 20120125
  Transmission Date: 20120608
  Serious: No
  Sender: FDA-Public Use
  Company Number: None

PATIENT
  Age: 61 Year
  Sex: Male
  Weight: 76.203 kg

DRUGS (1)
  1. TAMSULOSIN HCL [Suspect]
     Indication: PROSTATIC DISORDER
     Route: 048
     Dates: start: 20120106, end: 20120112

REACTIONS (3)
  - PAIN [None]
  - RASH [None]
  - STOMATITIS [None]
